FAERS Safety Report 12137516 (Version 1)
Quarter: 2020Q3

REPORT INFORMATION
  Report Type: Report from Study
  Country: US (occurrence: US)
  Receive Date: 20160302
  Receipt Date: 20160302
  Transmission Date: 20201104
  Serious: Yes (Hospitalization, Other)
  Sender: FDA-Public Use
  Company Number: US-JNJFOC-20150819418

PATIENT
  Age: 66 Year
  Sex: Female
  Weight: 62 kg

DRUGS (2)
  1. DARATUMUMAB [Suspect]
     Active Substance: DARATUMUMAB
     Indication: PLASMA CELL MYELOMA
     Dosage: INFUSION RESTART TIME: 15:47, CYCLE 1 DAY 8
     Route: 042
  2. DARATUMUMAB [Suspect]
     Active Substance: DARATUMUMAB
     Indication: PLASMA CELL MYELOMA
     Dosage: ORIGINAL INFUSION START TIME: 1351; IVPB, CYCLE 1 DAY 1
     Route: 042
     Dates: start: 20150824

REACTIONS (2)
  - Acute kidney injury [Recovering/Resolving]
  - Infusion related reaction [Recovered/Resolved]

NARRATIVE: CASE EVENT DATE: 20150824
